FAERS Safety Report 16292192 (Version 5)
Quarter: 2020Q4

REPORT INFORMATION
  Report Type: Spontaneous
  Country: DK (occurrence: DK)
  Receive Date: 20190509
  Receipt Date: 20201218
  Transmission Date: 20210113
  Serious: Yes (Hospitalization, Disabling)
  Sender: FDA-Public Use
  Company Number: DK-ALLERGAN-1918916US

PATIENT
  Sex: Male
  Weight: 74 kg

DRUGS (4)
  1. INFLECTRA [Suspect]
     Active Substance: INFLIXIMAB-DYYB
     Indication: COLITIS ULCERATIVE
     Dosage: FROM NOV2018, HAD 400 MG THREE TIMES. FROM 08FEB2019 800 MG ONCE.
     Route: 065
     Dates: start: 20181116, end: 20190208
  2. ASACOL HD [Suspect]
     Active Substance: MESALAMINE
     Indication: COLITIS ULCERATIVE
     Dosage: 3200 MG, QD
     Route: 048
     Dates: start: 201509, end: 20190423
  3. PREDNISOLON [Concomitant]
     Active Substance: PREDNISOLONE
     Indication: COLITIS ULCERATIVE
     Dosage: STRENGTH: VARYING, FROM 1-25 MG. DOSAGE: 5-45 MG.
     Route: 048
     Dates: start: 20181116, end: 20190125
  4. SOLU-MEDROL [Concomitant]
     Active Substance: METHYLPREDNISOLONE SODIUM SUCCINATE
     Indication: COLITIS ULCERATIVE
     Dosage: STRENGHT: UNKNOWN. DOSAGE: UNKNOWN
     Dates: start: 201811, end: 201911

REACTIONS (10)
  - Cough [Unknown]
  - Arthralgia [Unknown]
  - Myalgia [Unknown]
  - Pulmonary fibrosis [Not Recovered/Not Resolved]
  - Endotracheal intubation [Recovered/Resolved]
  - Dyspnoea [Recovering/Resolving]
  - Respiratory failure [Unknown]
  - Organising pneumonia [Not Recovered/Not Resolved]
  - C-reactive protein increased [Recovering/Resolving]
  - Pyrexia [Unknown]

NARRATIVE: CASE EVENT DATE: 201902
